FAERS Safety Report 4898450-2 (Version None)
Quarter: 2006Q1

REPORT INFORMATION
  Report Type: 
  Country: None (occurrence: None)
  Receive Date: 20060127
  Receipt Date: 20060114
  Transmission Date: 20060701
  Serious: Yes (Other)
  Sender: FDA-Public Use
  Company Number: 2005168087

PATIENT
  Sex: Male

DRUGS (1)
  1. VFEND [Suspect]
     Indication: OESOPHAGEAL CANDIDIASIS
     Dosage: 400 MG (200 MG, 2 IN 1 D), ORAL
     Route: 048
     Dates: start: 20050616, end: 20050101

REACTIONS (1)
  - PATHOGEN RESISTANCE [None]
